FAERS Safety Report 12393901 (Version 1)
Quarter: 2016Q2

REPORT INFORMATION
  Report Type: Spontaneous
  Country: US (occurrence: US)
  Receive Date: 20160523
  Receipt Date: 20160523
  Transmission Date: 20160815
  Serious: Yes (Other)
  Sender: FDA-Public Use
  Company Number: US-BAYER-2016-093606

PATIENT
  Age: 20 Year
  Sex: Female
  Weight: 106.12 kg

DRUGS (2)
  1. NUVARING [Concomitant]
     Active Substance: ETHINYL ESTRADIOL\ETONOGESTREL
     Indication: CONTRACEPTION
     Dosage: UNK
     Dates: start: 201402
  2. MIRENA [Suspect]
     Active Substance: LEVONORGESTREL
     Indication: CONTRACEPTION
     Dosage: 20 MCG/24HR, CONT
     Route: 015
     Dates: start: 20100305, end: 20140205

REACTIONS (14)
  - Menorrhagia [None]
  - Abdominal pain lower [None]
  - Device difficult to use [None]
  - Ovarian cyst [None]
  - Abdominal pain [None]
  - Menstruation irregular [None]
  - Device issue [None]
  - Vaginal infection [None]
  - Vulvovaginal burning sensation [None]
  - Embedded device [None]
  - Medical device discomfort [None]
  - Coital bleeding [None]
  - Pelvic pain [None]
  - Dysstasia [None]

NARRATIVE: CASE EVENT DATE: 201003
